FAERS Safety Report 8439815-1 (Version None)
Quarter: 2012Q2

REPORT INFORMATION
  Report Type: 
  Country: None (occurrence: None)
  Receive Date: 20120615
  Receipt Date: 20120613
  Transmission Date: 20120825
  Serious: No
  Sender: FDA-Public Use
  Company Number: US-PFIZER INC-2012142665

PATIENT
  Sex: Female

DRUGS (1)
  1. LYRICA [Suspect]
     Indication: UPPER LIMB FRACTURE
     Dosage: 50 MG, 2X/DAY
     Dates: start: 20120101

REACTIONS (2)
  - PAIN [None]
  - RASH [None]
